FAERS Safety Report 9416219 (Version 1)
Quarter: 2013Q3

REPORT INFORMATION
  Report Type: Spontaneous
  Country: TR (occurrence: None)
  Receive Date: 20130718
  Receipt Date: 20130718
  Transmission Date: 20140515
  Serious: Yes (Hospitalization)
  Sender: FDA-Public Use
  Company Number: SYM-2013-05990

PATIENT
  Age: 64 Year
  Sex: Female

DRUGS (1)
  1. METRONIDAZOLE [Suspect]
     Indication: COLITIS ULCERATIVE

REACTIONS (7)
  - Cytotoxic oedema [None]
  - Nervous system disorder [None]
  - Toxicity to various agents [None]
  - Overdose [None]
  - Incorrect drug administration duration [None]
  - Ataxia [None]
  - Dysarthria [None]
